FAERS Safety Report 5245088-3 (Version None)
Quarter: 2007Q1

REPORT INFORMATION
  Report Type: 
  Country: None (occurrence: None)
  Receive Date: 20070223
  Receipt Date: 20070214
  Transmission Date: 20070707
  Serious: Yes (Other)
  Sender: FDA-Public Use
  Company Number: JP-BAYER-200611285BYL

PATIENT
  Age: 37 Year
  Sex: Male
  Weight: 70 kg

DRUGS (1)
  1. AVELOX [Suspect]
     Indication: PNEUMONIA
     Dosage: TOTAL DAILY DOSE: 400 MG  UNIT DOSE: 400 MG
     Route: 048
     Dates: start: 20061102, end: 20061102

REACTIONS (9)
  - EYE PRURITUS [None]
  - LIP SWELLING [None]
  - LIP ULCERATION [None]
  - PIGMENTATION DISORDER [None]
  - PRURITUS GENERALISED [None]
  - PRURITUS GENITAL [None]
  - SCROTAL PAIN [None]
  - SCROTAL ULCER [None]
  - SKIN ULCER [None]
